FAERS Safety Report 5761552-2 (Version None)
Quarter: 2008Q2

REPORT INFORMATION
  Report Type: 
  Country: None (occurrence: None)
  Receive Date: 20080606
  Receipt Date: 20080603
  Transmission Date: 20081010
  Serious: Yes (Other)
  Sender: FDA-Public Use
  Company Number: US-ABBOTT-08P-163-0454875-00

PATIENT
  Age: 30 Year
  Sex: Female

DRUGS (3)
  1. KALETRA [Suspect]
     Indication: SYSTEMIC ANTIVIRAL TREATMENT
     Dosage: 200MG/50 MG, 4 TABS DAILY
     Route: 048
     Dates: start: 20080313
  2. ATRIPLA [Suspect]
     Indication: SYSTEMIC ANTIVIRAL TREATMENT
     Route: 048
     Dates: end: 20080313
  3. TRUVADA [Suspect]
     Indication: SYSTEMIC ANTIVIRAL TREATMENT
     Dosage: 200/800MG DAILY
     Route: 048
     Dates: start: 20080313

REACTIONS (1)
  - ABORTION SPONTANEOUS [None]
